FAERS Safety Report 5894266-9 (Version None)
Quarter: 2008Q3

REPORT INFORMATION
  Report Type: 
  Country: None (occurrence: None)
  Receive Date: 20080923
  Receipt Date: 20080324
  Transmission Date: 20090109
  Serious: No
  Sender: FDA-Public Use
  Company Number: US-ASTRAZENECA-2008UW05924

PATIENT
  Age: 31 Year
  Sex: Female

DRUGS (10)
  1. SEROQUEL XR [Suspect]
     Indication: BIPOLAR DISORDER
     Route: 048
     Dates: start: 20071108
  2. SEROQUEL XR [Suspect]
     Indication: PSYCHOTIC DISORDER
     Route: 048
     Dates: start: 20071108
  3. INVEGA [Suspect]
     Dates: start: 20070801, end: 20070101
  4. INVEGA [Suspect]
     Dates: start: 20070101, end: 20071101
  5. HALDOL [Concomitant]
     Indication: BIPOLAR DISORDER
  6. HALDOL [Concomitant]
     Indication: PSYCHOTIC DISORDER
  7. ABILIFY [Concomitant]
     Indication: BIPOLAR DISORDER
     Dates: start: 20070101, end: 20070201
  8. ABILIFY [Concomitant]
     Indication: PSYCHOTIC DISORDER
     Dates: start: 20070101, end: 20070201
  9. ZYPREXA [Concomitant]
     Indication: BIPOLAR DISORDER
     Dates: start: 20070201, end: 20070801
  10. ZYPREXA [Concomitant]
     Indication: PSYCHOTIC DISORDER
     Dates: start: 20070201, end: 20070801

REACTIONS (1)
  - METABOLIC SYNDROME [None]
